FAERS Safety Report 6934716-X (Version None)
Quarter: 2010Q3

REPORT INFORMATION
  Report Type: 
  Country: None (occurrence: None)
  Receive Date: 20100820
  Receipt Date: 20100816
  Transmission Date: 20110219
  Serious: Yes (Hospitalization)
  Sender: FDA-Public Use
  Company Number: FR-MERCK-1008FRA00052

PATIENT
  Age: 48 Year
  Sex: Female

DRUGS (9)
  1. SINEMET [Suspect]
     Indication: PARKINSON'S DISEASE
     Route: 048
     Dates: start: 20091209
  2. SINEMET [Suspect]
     Route: 048
     Dates: end: 20091219
  3. TRIVASTAL [Concomitant]
     Indication: PARKINSON'S DISEASE
     Route: 048
  4. BI-PROFENID [Concomitant]
     Indication: MIGRAINE
     Route: 048
     Dates: end: 20091213
  5. ASPEGIC 1000 [Concomitant]
     Indication: MIGRAINE
     Route: 048
     Dates: end: 20091213
  6. TIGREAT [Concomitant]
     Indication: MIGRAINE
     Route: 048
     Dates: end: 20091213
  7. NOCERTONE [Concomitant]
     Indication: MIGRAINE
     Route: 048
     Dates: end: 20091213
  8. MOTILIUM [Concomitant]
     Indication: NAUSEA
     Route: 048
     Dates: end: 20091213
  9. EFFEXOR [Concomitant]
     Indication: DEPRESSION
     Route: 048
     Dates: end: 20091213

REACTIONS (5)
  - DIPLOPIA [None]
  - NAUSEA [None]
  - TINNITUS [None]
  - VERTIGO [None]
  - VOMITING [None]
